FAERS Safety Report 22981843 (Version 5)
Quarter: 2025Q2

REPORT INFORMATION
  Report Type: Spontaneous
  Country: JP (occurrence: JP)
  Receive Date: 20230925
  Receipt Date: 20250526
  Transmission Date: 20250717
  Serious: Yes (Death, Hospitalization, Other)
  Sender: AMGEN
  Company Number: JP-KISSEI-TV20230372

PATIENT
  Age: 73 Year
  Sex: Female
  Weight: 32 kg

DRUGS (16)
  1. TAVNEOS [Suspect]
     Active Substance: AVACOPAN
     Indication: Microscopic polyangiitis
     Dosage: 30 MG, BID
     Route: 048
     Dates: start: 20230610, end: 20230713
  2. PREDONINE [Concomitant]
     Active Substance: PREDNISOLONE
     Indication: Microscopic polyangiitis
     Route: 065
     Dates: start: 202010
  3. PREDONINE [Concomitant]
     Active Substance: PREDNISOLONE
     Dosage: 10,MG,QD
     Route: 065
     Dates: start: 20201019
  4. PREDONINE [Concomitant]
     Active Substance: PREDNISOLONE
     Dosage: 12.5,MG,QD
     Route: 065
  5. PREDONINE [Concomitant]
     Active Substance: PREDNISOLONE
     Dosage: 15,MG,QD
     Route: 065
  6. SULFAMETHOXAZOLE\TRIMETHOPRIM [Concomitant]
     Active Substance: SULFAMETHOXAZOLE\TRIMETHOPRIM
     Indication: Microscopic polyangiitis
     Dosage: PERORAL MEDICINE
     Route: 048
  7. SULFAMETHOXAZOLE\TRIMETHOPRIM [Concomitant]
     Active Substance: SULFAMETHOXAZOLE\TRIMETHOPRIM
     Indication: Prophylaxis
     Route: 048
     Dates: start: 20220513, end: 20230715
  8. SULFAMETHOXAZOLE\TRIMETHOPRIM [Concomitant]
     Active Substance: SULFAMETHOXAZOLE\TRIMETHOPRIM
     Route: 048
     Dates: start: 20230814, end: 20230824
  9. ALFACALCIDOL [Concomitant]
     Active Substance: ALFACALCIDOL
     Indication: Microscopic polyangiitis
     Dosage: .25,MUG,QD
     Route: 048
     Dates: start: 20211012, end: 20230715
  10. ALFACALCIDOL [Concomitant]
     Active Substance: ALFACALCIDOL
     Indication: Prophylaxis
  11. VONOPRAZAN FUMARATE [Concomitant]
     Active Substance: VONOPRAZAN FUMARATE
     Indication: Microscopic polyangiitis
     Dosage: 10,MG,QD
     Route: 048
     Dates: start: 20210121, end: 20230715
  12. VONOPRAZAN FUMARATE [Concomitant]
     Active Substance: VONOPRAZAN FUMARATE
     Indication: Prophylaxis
  13. LOSARTAN POTASSIUM [Concomitant]
     Active Substance: LOSARTAN POTASSIUM
     Indication: Microscopic polyangiitis
     Dosage: 1,DF,QD
     Route: 048
  14. LOSARTAN POTASSIUM [Concomitant]
     Active Substance: LOSARTAN POTASSIUM
     Dosage: 1,DF,QD
     Route: 048
     Dates: start: 20221202, end: 20230715
  15. POLAPREZINC [Concomitant]
     Active Substance: POLAPREZINC
     Dosage: 75,MG,BID
     Route: 048
  16. METHYLPREDNISOLONE SODIUM SUCCINATE [Concomitant]
     Active Substance: METHYLPREDNISOLONE SODIUM SUCCINATE
     Dates: end: 20230714

REACTIONS (8)
  - Vanishing bile duct syndrome [Fatal]
  - Hepatic function abnormal [Fatal]
  - Jaundice [Fatal]
  - Malaise [Fatal]
  - Decreased appetite [Fatal]
  - Pruritus [Fatal]
  - Ascites [Fatal]
  - Shock haemorrhagic [Fatal]

NARRATIVE: CASE EVENT DATE: 20230707
